FAERS Safety Report 20055030 (Version 1)
Quarter: 2021Q4

REPORT INFORMATION
  Report Type: Spontaneous
  Country: None (occurrence: CH)
  Receive Date: 20211110
  Receipt Date: 20211110
  Transmission Date: 20220303
  Serious: Yes (Hospitalization, Other)
  Sender: FDA-Public Use
  Company Number: CH-Avion Pharmaceuticals, LLC-2121711

PATIENT
  Age: 4 Year
  Sex: Female
  Weight: 13 kg

DRUGS (1)
  1. GLOPERBA [Suspect]
     Active Substance: COLCHICINE
     Indication: Pericardial effusion
     Route: 065

REACTIONS (21)
  - Accidental overdose [Unknown]
  - Vomiting [Unknown]
  - Diarrhoea [Unknown]
  - Tachycardia [Unknown]
  - Tachypnoea [Unknown]
  - Somnolence [Unknown]
  - Hypotension [Unknown]
  - Hypoxia [Unknown]
  - Tricuspid valve incompetence [Unknown]
  - Cardiogenic shock [Unknown]
  - Multiple organ dysfunction syndrome [Unknown]
  - Anuria [Unknown]
  - Renal tubular necrosis [Unknown]
  - Hepatic failure [Unknown]
  - Coagulopathy [Unknown]
  - Bone marrow failure [Unknown]
  - Leukopenia [Unknown]
  - Thrombocytopenia [Unknown]
  - Asthenia [Unknown]
  - Intensive care unit acquired weakness [Unknown]
  - Alopecia [Unknown]
